FAERS Safety Report 7473221-1 (Version None)
Quarter: 2011Q2

REPORT INFORMATION
  Report Type: 
  Country: None (occurrence: None)
  Receive Date: 20110511
  Receipt Date: 20110504
  Transmission Date: 20111010
  Serious: Yes (Other)
  Sender: FDA-Public Use
  Company Number: B0716973A

PATIENT
  Age: 60 Year
  Sex: Male

DRUGS (4)
  1. RITONAVIR [Suspect]
     Dates: start: 20070201
  2. PRAVASTATIN [Concomitant]
  3. ABACAVIR SULFATE AND LAMIVUDINE [Suspect]
     Dates: start: 20070201
  4. REYATAZ [Suspect]
     Dates: start: 20070201

REACTIONS (2)
  - BLOOD CREATININE INCREASED [None]
  - BLOOD BILIRUBIN INCREASED [None]
